FAERS Safety Report 4773454-9 (Version None)
Quarter: 2005Q3

REPORT INFORMATION
  Report Type: 
  Country: None (occurrence: None)
  Receive Date: 20050920
  Receipt Date: 20050908
  Transmission Date: 20060218
  Serious: Yes (Other)
  Sender: FDA-Public Use
  Company Number: DE-JNJFOC-20050806382

PATIENT
  Sex: Female
  Weight: 55 kg

DRUGS (7)
  1. DURAGESIC-100 [Suspect]
     Indication: OSTEOPOROSIS
     Route: 062
  2. ISOPTIN [Concomitant]
     Indication: HYPERTENSION
     Route: 065
  3. ISOPTIN KHK [Concomitant]
     Indication: HYPERTENSION
     Route: 065
  4. IDEOS [Concomitant]
     Route: 065
  5. IDEOS [Concomitant]
     Indication: OSTEOPOROSIS
     Route: 065
  6. THROMCARDIN [Concomitant]
     Route: 065
  7. THROMCARDIN [Concomitant]
     Route: 065

REACTIONS (3)
  - HYPERHIDROSIS [None]
  - HYPERTENSION [None]
  - HYPOGLYCAEMIA [None]
